FAERS Safety Report 5377751-8 (Version None)
Quarter: 2007Q3

REPORT INFORMATION
  Report Type: 
  Country: None (occurrence: None)
  Receive Date: 20070703
  Receipt Date: 20070621
  Transmission Date: 20080115
  Serious: Yes (Other)
  Sender: FDA-Public Use
  Company Number: US-PFIZER INC-2007051864

PATIENT
  Sex: Male
  Weight: 75.8 kg

DRUGS (6)
  1. VIAGRA [Suspect]
     Indication: ERECTILE DYSFUNCTION
  2. WARFARIN SODIUM [Suspect]
     Indication: MITRAL VALVE PROLAPSE
  3. WARFARIN SODIUM [Suspect]
     Indication: ATRIAL FIBRILLATION
  4. METOPROLOL SUCCINATE [Concomitant]
  5. LITHIUM [Concomitant]
  6. LORAZEPAM [Concomitant]

REACTIONS (8)
  - BLOOD PRESSURE INCREASED [None]
  - DRUG INEFFECTIVE [None]
  - HOT FLUSH [None]
  - INTERNATIONAL NORMALISED RATIO INCREASED [None]
  - MOUTH HAEMORRHAGE [None]
  - PANIC ATTACK [None]
  - PANIC REACTION [None]
  - PHYSICAL ASSAULT [None]
